FAERS Safety Report 9741011 (Version 1)
Quarter: 2013Q4

REPORT INFORMATION
  Report Type: Spontaneous
  Country: ES (occurrence: ES)
  Receive Date: 20131209
  Receipt Date: 20131209
  Transmission Date: 20140711
  Serious: Yes (Hospitalization)
  Sender: FDA-Public Use
  Company Number: PHHY2013ES138553

PATIENT
  Age: 63 Year
  Sex: Male

DRUGS (1)
  1. METFORMIN [Suspect]
     Indication: TYPE 2 DIABETES MELLITUS
     Dosage: 850 MG, 8 HOURS

REACTIONS (18)
  - Psychomotor hyperactivity [Unknown]
  - Renal impairment [Unknown]
  - Anuria [Recovering/Resolving]
  - Blood creatinine increased [Unknown]
  - Blood urea increased [Unknown]
  - Hyperkalaemia [Unknown]
  - Lactic acidosis [Unknown]
  - Metabolic acidosis [Unknown]
  - Blood lactic acid increased [Unknown]
  - Anion gap increased [Unknown]
  - Blood pH decreased [Unknown]
  - Hypotension [Unknown]
  - Hypoventilation [Unknown]
  - Dyspnoea [Unknown]
  - Tachypnoea [Unknown]
  - Haemodynamic instability [Unknown]
  - Abdominal pain upper [Unknown]
  - Diarrhoea [Unknown]
